FAERS Safety Report 6185936-6 (Version None)
Quarter: 2009Q2

REPORT INFORMATION
  Report Type: 
  Country: None (occurrence: None)
  Receive Date: 20090507
  Receipt Date: 20090422
  Transmission Date: 20091009
  Serious: Yes (Other)
  Sender: FDA-Public Use
  Company Number: 20090608

PATIENT
  Sex: Male
  Weight: 88 kg

DRUGS (6)
  1. OMEPRAZOLE [Suspect]
     Indication: GASTROOESOPHAGEAL REFLUX DISEASE
     Dosage: 40 MG ONCE A DAY, ORAL
     Route: 048
     Dates: start: 20070125, end: 20080228
  2. OMEPRAZOLE [Suspect]
     Indication: GASTROOESOPHAGEAL REFLUX DISEASE
     Dosage: 40 MG ONCE A DAY, ORAL
     Route: 048
     Dates: start: 20080301, end: 20090421
  3. CLONAZEPAM [Concomitant]
  4. ACETYLSALICYLIC ACID [Concomitant]
  5. ATENOLOL [Concomitant]
  6. TRAZODONE HCL [Concomitant]

REACTIONS (6)
  - DIZZINESS [None]
  - HAEMATEMESIS [None]
  - HAEMATOCHEZIA [None]
  - HYPERTENSION [None]
  - MELAENA [None]
  - SYNCOPE [None]
